FAERS Safety Report 9639891 (Version 1)
Quarter: 2013Q4

REPORT INFORMATION
  Report Type: Spontaneous
  Country: DE (occurrence: DE)
  Receive Date: 20131023
  Receipt Date: 20131023
  Transmission Date: 20140711
  Serious: Yes (Congenital Anomaly, Other)
  Sender: FDA-Public Use
  Company Number: DE-RANBAXY-2013R1-74448

PATIENT
  Age: 1 Day
  Sex: Female
  Weight: .77 kg

DRUGS (2)
  1. FLUOXETINE [Suspect]
     Indication: DEPRESSION
     Dosage: UNK
     Route: 064
  2. NIFEDIPINE [Concomitant]
     Indication: ECLAMPSIA
     Dosage: UNK
     Route: 064

REACTIONS (4)
  - Pulmonary valve incompetence [Recovered/Resolved]
  - Premature baby [Recovered/Resolved]
  - Patent ductus arteriosus [Recovered/Resolved]
  - Atrial septal defect [Recovering/Resolving]
